FAERS Safety Report 18346366 (Version 1)
Quarter: 2020Q4

REPORT INFORMATION
  Report Type: Report from Study
  Country: JP (occurrence: JP)
  Receive Date: 20201005
  Receipt Date: 20201005
  Transmission Date: 20210114
  Serious: Yes (Other)
  Sender: FDA-Public Use
  Company Number: JP-JNJFOC-20200940514

PATIENT

DRUGS (1)
  1. REMICADE [Suspect]
     Active Substance: INFLIXIMAB
     Indication: KAWASAKI^S DISEASE
     Route: 042

REACTIONS (25)
  - Hypothermia [Recovering/Resolving]
  - Mitral valve incompetence [Recovering/Resolving]
  - Neck pain [Recovering/Resolving]
  - Diarrhoea [Recovering/Resolving]
  - Pneumonia chlamydial [Recovering/Resolving]
  - Cough [Recovering/Resolving]
  - Urticaria [Recovering/Resolving]
  - Cellulitis orbital [Recovering/Resolving]
  - Respiratory tract infection [Recovering/Resolving]
  - Arthritis [Recovering/Resolving]
  - Rash [Recovering/Resolving]
  - Abdominal pain [Recovering/Resolving]
  - Infusion related reaction [Recovering/Resolving]
  - Dermatitis psoriasiform [Recovering/Resolving]
  - Oedema peripheral [Recovering/Resolving]
  - Gastroenteritis [Recovering/Resolving]
  - Bronchitis [Recovering/Resolving]
  - Arthralgia [Recovering/Resolving]
  - Pyrexia [Recovering/Resolving]
  - Petechiae [Recovering/Resolving]
  - White blood cell count decreased [Recovering/Resolving]
  - Influenza [Recovering/Resolving]
  - Anaemia [Recovering/Resolving]
  - Pain in extremity [Recovering/Resolving]
  - Hepatic function abnormal [Recovering/Resolving]
